FAERS Safety Report 13387564 (Version 1)
Quarter: 2017Q1

REPORT INFORMATION
  Report Type: Spontaneous
  Country: US (occurrence: US)
  Receive Date: 20170330
  Receipt Date: 20170330
  Transmission Date: 20170429
  Serious: No
  Sender: FDA-Public Use
  Company Number: US-009507513-1703USA013129

PATIENT
  Sex: Female

DRUGS (8)
  1. CLARITIN [Suspect]
     Active Substance: LORATADINE
     Indication: ASTHMA
     Dosage: UNK, QD
  2. ALLEGRA [Suspect]
     Active Substance: FEXOFENADINE HYDROCHLORIDE
     Indication: ASTHMA
     Dosage: UNK, QD
  3. PREDNISONE. [Suspect]
     Active Substance: PREDNISONE
     Indication: ASTHMA
     Dosage: UNK UNK, PRN
     Route: 048
  4. ATROVENT [Suspect]
     Active Substance: IPRATROPIUM BROMIDE
     Indication: ASTHMA
     Dosage: UNK, PRN
  5. FLONASE [Suspect]
     Active Substance: FLUTICASONE PROPIONATE
     Indication: ASTHMA
     Dosage: UNK, QD
  6. PROVENTIL [Suspect]
     Active Substance: ALBUTEROL
     Indication: ASTHMA
     Dosage: UNK, PRN
  7. QVAR [Suspect]
     Active Substance: BECLOMETHASONE DIPROPIONATE
     Indication: ASTHMA
     Dosage: UNK, QD
  8. FORADIL [Concomitant]
     Active Substance: FORMOTEROL FUMARATE
     Indication: ASTHMA
     Dosage: UNK
     Dates: start: 1997, end: 2017

REACTIONS (1)
  - Drug ineffective [Unknown]
